FAERS Safety Report 16873009 (Version 1)
Quarter: 2019Q4

REPORT INFORMATION
  Report Type: Spontaneous
  Country: US (occurrence: US)
  Receive Date: 20191001
  Receipt Date: 20191001
  Transmission Date: 20200122
  Serious: No
  Sender: FDA-Public Use
  Company Number: US-ASTRAZENECA-2019SF27812

PATIENT
  Sex: Female

DRUGS (4)
  1. CRESTOR [Suspect]
     Active Substance: ROSUVASTATIN CALCIUM
     Route: 048
     Dates: start: 201907, end: 201908
  2. CRESTOR [Suspect]
     Active Substance: ROSUVASTATIN CALCIUM
     Route: 048
     Dates: start: 201907, end: 201908
  3. COQ10 [Concomitant]
     Active Substance: UBIDECARENONE
     Indication: PAIN IN EXTREMITY
     Route: 065
  4. CRESTOR [Suspect]
     Active Substance: ROSUVASTATIN CALCIUM
     Route: 048
     Dates: start: 201908

REACTIONS (3)
  - Low density lipoprotein increased [Unknown]
  - Pain in extremity [Not Recovered/Not Resolved]
  - C-reactive protein increased [Unknown]
